FAERS Safety Report 7733922-4 (Version None)
Quarter: 2011Q3

REPORT INFORMATION
  Report Type: 
  Country: None (occurrence: None)
  Receive Date: 20110907
  Receipt Date: 20110719
  Transmission Date: 20111222
  Serious: Yes (Other)
  Sender: FDA-Public Use
  Company Number: US-SANOFI-AVENTIS-2011SA056568

PATIENT
  Sex: Male

DRUGS (1)
  1. AMBIEN [Suspect]
     Route: 065

REACTIONS (2)
  - AMNESIA [None]
  - SEXUAL ABUSE [None]
